FAERS Safety Report 13164142 (Version 1)
Quarter: 2017Q1

REPORT INFORMATION
  Report Type: Spontaneous
  Country: HU (occurrence: HU)
  Receive Date: 20170130
  Receipt Date: 20170130
  Transmission Date: 20170428
  Serious: Yes (Disabling)
  Sender: FDA-Public Use
  Company Number: HU-BAYER-2017-008446

PATIENT
  Age: 28 Year
  Sex: Female

DRUGS (4)
  1. YADINE [Suspect]
     Active Substance: DROSPIRENONE\ETHINYL ESTRADIOL
     Indication: CONTRACEPTION
     Dosage: UNK
     Route: 048
     Dates: start: 2009, end: 2012
  2. YASMIN ED, FILM-COATED TABLETS, 0.03 MG/3 MG [Suspect]
     Active Substance: DROSPIRENONE\ETHINYL ESTRADIOL
     Indication: CONTRACEPTION
     Dosage: UNK
     Route: 048
     Dates: start: 2012, end: 2012
  3. YADINE [Suspect]
     Active Substance: DROSPIRENONE\ETHINYL ESTRADIOL
     Indication: CONTRACEPTION
     Dosage: UNK
     Route: 048
     Dates: start: 2012, end: 2016
  4. YADINE [Suspect]
     Active Substance: DROSPIRENONE\ETHINYL ESTRADIOL
     Indication: CONTRACEPTION
     Dosage: UNK
     Route: 048
     Dates: start: 2006, end: 2009

REACTIONS (14)
  - Depressed mood [Not Recovered/Not Resolved]
  - Vomiting [Recovered/Resolved]
  - Depression [Not Recovered/Not Resolved]
  - Transferrin increased [None]
  - C-reactive protein increased [None]
  - Iron binding capacity total increased [None]
  - Red cell distribution width decreased [None]
  - Mean cell volume decreased [None]
  - Toxoplasma serology positive [None]
  - Headache [Recovered/Resolved]
  - Libido decreased [Recovered/Resolved]
  - Nausea [Recovered/Resolved]
  - Blood triglycerides increased [None]
  - Diffuse alopecia [Not Recovered/Not Resolved]

NARRATIVE: CASE EVENT DATE: 2012
